FAERS Safety Report 9218213 (Version 4)
Quarter: 2013Q3

REPORT INFORMATION
  Report Type: Spontaneous
  Country: DK (occurrence: DK)
  Receive Date: 20130408
  Receipt Date: 20130904
  Transmission Date: 20140515
  Serious: Yes (Hospitalization)
  Sender: FDA-Public Use
  Company Number: DK-AMGEN-DNKSP2013023255

PATIENT
  Age: 68 Year
  Sex: Female
  Weight: 64 kg

DRUGS (7)
  1. PEGFILGRASTIM [Suspect]
     Indication: PRODUCT USED FOR UNKNOWN INDICATION
     Dosage: UNK
     Route: 065
  2. DOCETAXEL [Suspect]
     Indication: BREAST CANCER
     Dosage: 128 MG, 1 IN 3 WEEK
     Route: 042
     Dates: start: 20130220
  3. PERTUZUMAB [Concomitant]
     Indication: BREAST CANCER
     Dosage: UNK UNK, Q3WK
     Route: 042
  4. TRASTUZUMAB [Concomitant]
     Indication: BREAST CANCER
     Dosage: 6 MG/KG, Q3WK
     Route: 042
  5. EPIRUBICIN                         /00699302/ [Concomitant]
     Indication: BREAST CANCER
     Dosage: 153 MG, 1 IN 3 WK
     Route: 042
     Dates: start: 20121218
  6. FLUOROURACIL [Concomitant]
     Indication: BREAST CANCER
     Dosage: 850 MG, 1 IN 3 WK
     Route: 042
     Dates: start: 20121218
  7. CYCLOPHOSPHAMIDE [Concomitant]
     Indication: BREAST CANCER
     Dosage: 850 MG, 1 IN 3 WK
     Route: 042
     Dates: start: 20121218

REACTIONS (2)
  - Musculoskeletal pain [Recovered/Resolved]
  - Skin infection [Recovering/Resolving]
